FAERS Safety Report 12735061 (Version 8)
Quarter: 2017Q1

REPORT INFORMATION
  Report Type: Report from Study
  Country: US (occurrence: US)
  Receive Date: 20160912
  Receipt Date: 20170220
  Transmission Date: 20170428
  Serious: Yes (Other)
  Sender: FDA-Public Use
  Company Number: US-BAYER-2016-127693

PATIENT
  Age: 78 Year
  Sex: Female
  Weight: 85.26 kg

DRUGS (9)
  1. ADEMPAS [Suspect]
     Active Substance: RIOCIGUAT
     Indication: PULMONARY HYPERTENSION
     Dosage: 2.5 MG, TID
     Route: 048
  2. ADEMPAS [Suspect]
     Active Substance: RIOCIGUAT
     Indication: PULMONARY HYPERTENSION
     Dosage: 2.5 MG, TID
     Route: 048
  3. COUMADIN [Concomitant]
     Active Substance: WARFARIN SODIUM
     Dosage: UNK
  4. ADEMPAS [Suspect]
     Active Substance: RIOCIGUAT
     Indication: PULMONARY HYPERTENSION
     Dosage: 1 MG, TID
     Route: 048
  5. ADEMPAS [Suspect]
     Active Substance: RIOCIGUAT
     Indication: PULMONARY HYPERTENSION
     Dosage: UNK
     Dates: start: 20160519
  6. ADEMPAS [Suspect]
     Active Substance: RIOCIGUAT
     Indication: PULMONARY HYPERTENSION
     Dosage: 2 MG, TID
     Route: 048
  7. ADEMPAS [Suspect]
     Active Substance: RIOCIGUAT
     Indication: PULMONARY HYPERTENSION
     Dosage: 1.5 MG, TID
     Route: 048
  8. OPSUMIT [Concomitant]
     Active Substance: MACITENTAN
     Dosage: UNK
  9. ADEMPAS [Suspect]
     Active Substance: RIOCIGUAT
     Indication: PULMONARY HYPERTENSION
     Dosage: 0.5 MG, TID
     Route: 048

REACTIONS (31)
  - Oedema peripheral [None]
  - Abnormal loss of weight [None]
  - Accident [None]
  - Peripheral swelling [None]
  - Malaise [Unknown]
  - Intestinal obstruction [None]
  - Vomiting [None]
  - Contusion [None]
  - Gait disturbance [None]
  - Epistaxis [Not Recovered/Not Resolved]
  - Intentional product misuse [Unknown]
  - Magnesium deficiency [Unknown]
  - Asthenia [None]
  - Fall [Unknown]
  - Arteriovenous malformation [None]
  - Muscular weakness [None]
  - Blood pressure diastolic decreased [Unknown]
  - Dyspnoea [None]
  - Vestibular disorder [None]
  - Oedema [None]
  - Arterial haemorrhage [Unknown]
  - Hypokalaemia [Unknown]
  - Feeling abnormal [Unknown]
  - Hypotension [Unknown]
  - Diarrhoea [None]
  - Abdominal pain [None]
  - Dizziness [None]
  - Wheezing [Unknown]
  - Nausea [None]
  - Bronchitis [Recovering/Resolving]
  - Cough [Unknown]

NARRATIVE: CASE EVENT DATE: 201608
